FAERS Safety Report 4613564-X (Version None)
Quarter: 2005Q1

REPORT INFORMATION
  Report Type: 
  Country: None (occurrence: None)
  Receive Date: 20050316
  Receipt Date: 20050301
  Transmission Date: 20050727
  Serious: Yes (Hospitalization)
  Sender: FDA-Public Use
  Company Number: JP_050205952

PATIENT
  Age: 34 Year

DRUGS (4)
  1. HUMALOG [Suspect]
     Indication: DIABETES MELLITUS INSULIN-DEPENDENT
  2. NOVOLIN N [Concomitant]
  3. AST/SGOT, ASPARTATE AMINOTRANSFERASE [Concomitant]
  4. ALT/SGPT, ALANINE AMINOTRANSFERASE [Concomitant]

REACTIONS (2)
  - ALANINE AMINOTRANSFERASE INCREASED [None]
  - ASPARTATE AMINOTRANSFERASE INCREASED [None]
